FAERS Safety Report 12754975 (Version 1)
Quarter: 2016Q3

REPORT INFORMATION
  Report Type: Spontaneous
  Country: BR (occurrence: BR)
  Receive Date: 20160916
  Receipt Date: 20160916
  Transmission Date: 20161109
  Serious: Yes (Other)
  Sender: FDA-Public Use
  Company Number: BR-BRISTOL-MYERS SQUIBB COMPANY-BMS-2016-073474

PATIENT
  Sex: Female
  Weight: 46 kg

DRUGS (3)
  1. COUMADIN [Suspect]
     Active Substance: WARFARIN SODIUM
     Indication: CEREBROVASCULAR ACCIDENT
     Dosage: 2.5 MG, UNK
     Route: 065
  2. METICORTEN [Concomitant]
     Active Substance: PREDNISONE
     Indication: HEADACHE
     Route: 065
  3. DIPYRONE [Concomitant]
     Active Substance: DIPYRONE
     Indication: HEADACHE
     Dosage: UNK, PRN
     Route: 065

REACTIONS (3)
  - Vision blurred [Unknown]
  - Injury [Unknown]
  - Eye operation [Unknown]

NARRATIVE: CASE EVENT DATE: 2007
